FAERS Safety Report 5286809-3 (Version None)
Quarter: 2007Q2

REPORT INFORMATION
  Report Type: 
  Country: None (occurrence: None)
  Receive Date: 20070404
  Receipt Date: 20070321
  Transmission Date: 20071010
  Serious: Yes (Other)
  Sender: FDA-Public Use
  Company Number: US-SHR-US-2007-010025

PATIENT
  Age: 59 Year
  Sex: Male

DRUGS (2)
  1. BETASERON [Suspect]
     Dosage: 8 MIU, EVERY 2D
     Route: 058
     Dates: start: 19960216
  2. STOOL SOFTENER [Concomitant]
     Indication: CONSTIPATION
     Dates: start: 20050101

REACTIONS (1)
  - RECTAL HAEMORRHAGE [None]
